FAERS Safety Report 18806496 (Version 1)
Quarter: 2021Q1

REPORT INFORMATION
  Report Type: Spontaneous
  Country: NO (occurrence: NO)
  Receive Date: 20210129
  Receipt Date: 20210129
  Transmission Date: 20210419
  Serious: Yes (Hospitalization)
  Sender: FDA-Public Use
  Company Number: NO-ABBVIE-20K-122-3560358-00

PATIENT
  Age: 83 Year
  Sex: Male

DRUGS (2)
  1. ELIQUIS [Concomitant]
     Active Substance: APIXABAN
     Indication: PRODUCT USED FOR UNKNOWN INDICATION
     Dosage: THE PATIENT WAS TOLD TO STOP TREATMENT TWO DAYS BEFORE PLANNED SURGERY
     Dates: end: 202008
  2. IMBRUVICA [Suspect]
     Active Substance: IBRUTINIB
     Indication: WALDENSTROM^S MACROGLOBULINAEMIA
     Route: 048

REACTIONS (3)
  - Product administration error [Recovered/Resolved]
  - Medication error [Recovered/Resolved]
  - Post procedural haemorrhage [Recovered/Resolved]

NARRATIVE: CASE EVENT DATE: 202008
